FAERS Safety Report 24263015 (Version 5)
Quarter: 2025Q1

REPORT INFORMATION
  Report Type: Spontaneous
  Country: US (occurrence: US)
  Receive Date: 20240829
  Receipt Date: 20250203
  Transmission Date: 20250409
  Serious: No
  Sender: PFIZER
  Company Number: US-PFIZER INC-PV202400025090

PATIENT
  Age: 63 Year
  Sex: Female
  Weight: 77.11 kg

DRUGS (5)
  1. IBRANCE [Suspect]
     Active Substance: PALBOCICLIB
     Indication: Breast cancer female
     Dates: start: 2022
  2. IBRANCE [Suspect]
     Active Substance: PALBOCICLIB
     Route: 048
  3. VITAMIN E [Concomitant]
     Active Substance: .ALPHA.-TOCOPHEROL
     Indication: Bone disorder
     Dosage: 50 UG, 1X/DAY (TAKES ONE TABLET A DAY)
     Route: 048
  4. VITAMIN E [Concomitant]
     Active Substance: .ALPHA.-TOCOPHEROL
     Indication: Cardiac disorder
  5. ZOLOFT [Concomitant]
     Active Substance: SERTRALINE HYDROCHLORIDE
     Indication: Stress
     Dosage: 25 MG, 1X/DAY (TAKES ONE TABLET A DAY)
     Route: 048
     Dates: start: 202407

REACTIONS (4)
  - Eczema [Not Recovered/Not Resolved]
  - Dry skin [Unknown]
  - Rash pruritic [Not Recovered/Not Resolved]
  - Off label use [Unknown]
